FAERS Safety Report 5692698-5 (Version None)
Quarter: 2008Q2

REPORT INFORMATION
  Report Type: 
  Country: None (occurrence: None)
  Receive Date: 20080401
  Receipt Date: 20080320
  Transmission Date: 20081010
  Serious: Yes (Hospitalization)
  Sender: FDA-Public Use
  Company Number: 6041682

PATIENT
  Age: 84 Year
  Sex: Female

DRUGS (10)
  1. BISOPROLOL FUMARATE [Suspect]
     Indication: DRUG USE FOR UNKNOWN INDICATION
     Dosage: 10 MG (10 MG, 1-2) (10 MG, 1 D), ORAL
     Route: 048
  2. HYPERIUM (TABLET) (RILMENIDINE) [Suspect]
     Indication: DRUG USE FOR UNKNOWN INDICATION
     Dosage: 0.5 DOSAGE FORMS (0.5 DOSAGE FORMS, 1 D); ORAL
     Route: 048
  3. NICARDIPINE HYDROCHLORIDE [Suspect]
     Indication: DRUG USE FOR UNKNOWN INDICATION
     Dosage: 50 MG (50 MG, 1 D); ORAL
     Route: 048
  4. COKENZEN (TABLET) (HYDROCHLOROTHIAZIDE, CANDESARTAN CILEXETIL) [Suspect]
     Indication: DRUG USE FOR UNKNOWN INDICATION
     Dosage: 16 MG 916 MG, 1 D); ORAL
     Route: 048
  5. RISPERDAL [Suspect]
     Indication: DRUG USE FOR UNKNOWN INDICATION
     Dosage: 1 DOSAGE FORMS (1 DOSAGE FORMS, 1 D); ORAL
     Route: 048
  6. URBANYL (CAPSULE) (CLOBAZAM) [Suspect]
     Indication: DRUG USE FOR UNKNOWN INDICATION
     Dosage: 1 DOSAGE FORMS (1 DOSAGE FORMS, 1 D); ORAL
     Route: 048
  7. CIPRALAN (TABLET) (CIBENZOLINE SUCCINATE) [Concomitant]
  8. KARDEGIC (POWDER FOR ORAL SUSPENSION) (ACETYLSALICYLATE LYSINE) [Concomitant]
  9. DAFALGAN (500 MG, CAPSULE) (PARACETAMOL) [Concomitant]
  10. KALEORID LP (TABLET) (POTASSIUM CHLORIDE) [Concomitant]

REACTIONS (7)
  - FALL [None]
  - ORTHOSTATIC HYPOTENSION [None]
  - RENAL FAILURE [None]
  - RHABDOMYOLYSIS [None]
  - SOMNOLENCE [None]
  - STERNAL FRACTURE [None]
  - WRIST FRACTURE [None]
